FAERS Safety Report 13971231 (Version 16)
Quarter: 2020Q2

REPORT INFORMATION
  Report Type: Report from Study
  Country: US (occurrence: US)
  Receive Date: 20170914
  Receipt Date: 20200408
  Transmission Date: 20200713
  Serious: Yes (Other)
  Sender: FDA-Public Use
  Company Number: US-ASTELLAS-2017US014871

PATIENT
  Age: 78 Year
  Sex: Male

DRUGS (1)
  1. ENZALUTAMIDE [Suspect]
     Active Substance: ENZALUTAMIDE
     Indication: PROSTATE CANCER
     Route: 048
     Dates: start: 201511

REACTIONS (13)
  - Fatigue [Unknown]
  - Ear infection [Recovered/Resolved]
  - Libido decreased [Unknown]
  - Pulmonary congestion [Recovered/Resolved]
  - Hot flush [Unknown]
  - Night sweats [Not Recovered/Not Resolved]
  - Hypoaesthesia [Unknown]
  - Abdominal discomfort [Recovered/Resolved]
  - Hernia [Unknown]
  - Blister [Unknown]
  - Hyperhidrosis [Not Recovered/Not Resolved]
  - Blood pressure increased [Unknown]
  - Muscle spasms [Unknown]

NARRATIVE: CASE EVENT DATE: 2015
